FAERS Safety Report 18144493 (Version 1)
Quarter: 2020Q3

REPORT INFORMATION
  Report Type: Spontaneous
  Country: CA (occurrence: CA)
  Receive Date: 20200813
  Receipt Date: 20200813
  Transmission Date: 20201103
  Serious: Yes (Death)
  Sender: FDA-Public Use
  Company Number: CA-TEVA-2020-CA-1812840

PATIENT
  Sex: Male

DRUGS (1)
  1. CLARITHROMYCIN. [Suspect]
     Active Substance: CLARITHROMYCIN
     Route: 065

REACTIONS (5)
  - Staphylococcal infection [Fatal]
  - Brain hypoxia [Fatal]
  - Bacteraemia [Fatal]
  - Cardiac arrest [Fatal]
  - Pneumonia [Fatal]
